FAERS Safety Report 25834639 (Version 2)
Quarter: 2025Q3

REPORT INFORMATION
  Report Type: Other
  Country: US (occurrence: US)
  Receive Date: 20250923
  Receipt Date: 20250923
  Transmission Date: 20251021
  Serious: No
  Sender: SIGMA TAU
  Company Number: US-LEADIANT BIOSCIENCES, INC.-2024LBI000287

PATIENT
  Sex: Female

DRUGS (1)
  1. MATULANE [Suspect]
     Active Substance: PROCARBAZINE HYDROCHLORIDE
     Indication: Brain cancer metastatic
     Route: 048
     Dates: start: 20240215

REACTIONS (5)
  - Chest pain [Unknown]
  - Oropharyngeal pain [Unknown]
  - Pneumonitis [Unknown]
  - White blood cell count decreased [Unknown]
  - Platelet count decreased [Unknown]
